FAERS Safety Report 8167659-7 (Version None)
Quarter: 2012Q1

REPORT INFORMATION
  Report Type: 
  Country: None (occurrence: None)
  Receive Date: 20120227
  Receipt Date: 20120220
  Transmission Date: 20120608
  Serious: Yes (Other)
  Sender: FDA-Public Use
  Company Number: US-ROCHE-765206

PATIENT
  Age: 24 Year
  Sex: Female

DRUGS (3)
  1. TEMOZOLOMIDE [Concomitant]
     Indication: GLIOBLASTOMA MULTIFORME
  2. BEVACIZUMAB [Suspect]
     Indication: GLIOBLASTOMA MULTIFORME
     Route: 065
  3. IRINOTECAN HCL [Concomitant]
     Indication: GLIOBLASTOMA MULTIFORME

REACTIONS (1)
  - OPTIC NEUROPATHY [None]
